FAERS Safety Report 8853187 (Version 2)
Quarter: 2013Q1

REPORT INFORMATION
  Report Type: Spontaneous
  Country: US (occurrence: US)
  Receive Date: 20121022
  Receipt Date: 20130124
  Transmission Date: 20140127
  Serious: No
  Sender: FDA-Public Use
  Company Number: US-009507513-1210USA001502

PATIENT
  Age: 51 Year
  Sex: Female

DRUGS (9)
  1. SINGULAIR [Suspect]
     Dosage: 10 MG, QD
     Route: 048
     Dates: start: 201110
  2. CLARINEX (DESLORATADINE) [Concomitant]
  3. CYMBALTA [Concomitant]
  4. DEXILANT [Concomitant]
  5. DIAZEPAM [Concomitant]
  6. SYNTHROID [Concomitant]
  7. VYVANSE [Concomitant]
  8. ANTIMICROBIAL (UNSPECIFIED) [Concomitant]
  9. TRAZODONE HYDROCHLORIDE [Concomitant]

REACTIONS (1)
  - Irritability [Unknown]
